FAERS Safety Report 5762158-1 (Version None)
Quarter: 2008Q2

REPORT INFORMATION
  Report Type: 
  Country: None (occurrence: None)
  Receive Date: 20080604
  Receipt Date: 20080522
  Transmission Date: 20081010
  Serious: Yes (Hospitalization)
  Sender: FDA-Public Use
  Company Number: CAP08000141

PATIENT
  Age: 69 Year
  Sex: Female

DRUGS (4)
  1. ACTONEL [Suspect]
     Indication: OSTEOPOROSIS
     Dosage: 35 MG ONCE WEEKLY, ORAL
     Route: 048
     Dates: start: 20060901
  2. VITAMINS [Concomitant]
  3. CALCIUM (CALCIUM) [Concomitant]
  4. SOTALOL HCL [Concomitant]

REACTIONS (1)
  - ARRHYTHMIA SUPRAVENTRICULAR [None]
